FAERS Safety Report 10120944 (Version 2)
Quarter: 2014Q2

REPORT INFORMATION
  Report Type: Spontaneous
  Country: JP (occurrence: JP)
  Receive Date: 20140425
  Receipt Date: 20140425
  Transmission Date: 20141212
  Serious: Yes (Other)
  Sender: FDA-Public Use
  Company Number: JP-TAKEDA-2014TJP002523

PATIENT
  Age: 72 Year
  Sex: Female
  Weight: 65.6 kg

DRUGS (10)
  1. TAKEPRON INTRAVENOUS 30MG. [Suspect]
     Indication: PROPHYLAXIS
     Dosage: 30 MG, BID
     Route: 042
     Dates: start: 20140115, end: 20140116
  2. PETHIDINE HYDROCHLORIDE [Concomitant]
     Indication: SEDATION
     Dosage: 35 MG, QD
     Route: 042
     Dates: start: 20140115, end: 20140115
  3. DORMICUM                           /00634101/ [Concomitant]
     Indication: SEDATION
     Dosage: 10 MG, QD
     Route: 042
     Dates: start: 20140115, end: 20140115
  4. MYSLEE [Concomitant]
     Indication: INSOMNIA
     Dosage: 5 MG, QD
     Route: 048
     Dates: start: 2013
  5. ALLOID G [Suspect]
     Route: 048
  6. SOLDEM 3A [Concomitant]
     Dosage: UNK
     Route: 050
  7. ADONA                              /00056903/ [Concomitant]
     Indication: HAEMOSTASIS
     Dosage: 100 MG, QD
     Route: 041
     Dates: start: 20140115, end: 20140115
  8. TRANSAMIN [Concomitant]
     Indication: HAEMOSTASIS
     Dosage: 1 MG, QD
     Route: 041
     Dates: start: 20140115, end: 20140115
  9. BFLUID [Concomitant]
     Dosage: UNK
     Route: 050
  10. NEXIUM                             /01479302/ [Concomitant]
     Indication: PROPHYLAXIS
     Dosage: 20 MG, QD
     Route: 048
     Dates: start: 20140114

REACTIONS (2)
  - Generalised erythema [Recovered/Resolved]
  - Pyrexia [Recovered/Resolved]
